FAERS Safety Report 4638750-4 (Version None)
Quarter: 2005Q2

REPORT INFORMATION
  Report Type: 
  Country: None (occurrence: None)
  Receive Date: 20050418
  Receipt Date: 20050418
  Transmission Date: 20051028
  Serious: Yes (Other)
  Sender: FDA-Public Use
  Company Number: None

PATIENT
  Sex: Female
  Weight: 68.0396 kg

DRUGS (2)
  1. EXCEDRIN (MIGRAINE) [Suspect]
     Indication: MIGRAINE
     Dosage: 1-2 TABLETS   ONCE DAY   BUCCAL
     Route: 002
  2. PAXIL CR [Concomitant]

REACTIONS (10)
  - DERMATITIS EXFOLIATIVE [None]
  - DYSPEPSIA [None]
  - FEELING HOT [None]
  - MUCOUS MEMBRANE DISORDER [None]
  - NASAL DISCOMFORT [None]
  - RASH [None]
  - REACTION TO MEDICAL AGENT PRESERVATIVES [None]
  - SKIN BURNING SENSATION [None]
  - SKIN DISORDER [None]
  - STOMATITIS [None]
